FAERS Safety Report 6772437-7 (Version None)
Quarter: 2010Q2

REPORT INFORMATION
  Report Type: 
  Country: None (occurrence: None)
  Receive Date: 20100616
  Receipt Date: 20100611
  Transmission Date: 20101027
  Serious: Yes (Hospitalization)
  Sender: FDA-Public Use
  Company Number: FR-MERCK-1006FRA00044

PATIENT
  Age: 82 Year
  Sex: Male

DRUGS (6)
  1. COZAAR [Suspect]
     Indication: HYPERTENSION
     Route: 048
     Dates: end: 20100429
  2. FLUTAMIDE [Suspect]
     Indication: PROSTATE CANCER
     Route: 048
     Dates: start: 20100401, end: 20100429
  3. ASPIRIN LYSINE [Suspect]
     Route: 048
     Dates: end: 20100429
  4. NIFEDIPINE [Suspect]
     Route: 048
     Dates: end: 20100429
  5. GOSERELIN ACETATE [Concomitant]
     Indication: PROSTATE CANCER
     Route: 065
     Dates: end: 20100401
  6. CYPROTERONE ACETATE [Concomitant]
     Indication: PROSTATE CANCER
     Route: 065
     Dates: end: 20100401

REACTIONS (5)
  - ANAEMIA [None]
  - ASTHENIA [None]
  - RENAL FAILURE ACUTE [None]
  - THROMBOCYTOPENIA [None]
  - THROMBOTIC MICROANGIOPATHY [None]
